FAERS Safety Report 8314001-4 (Version None)
Quarter: 2012Q2

REPORT INFORMATION
  Report Type: 
  Country: None (occurrence: None)
  Receive Date: 20120426
  Receipt Date: 20120416
  Transmission Date: 20120825
  Serious: Yes (Hospitalization)
  Sender: FDA-Public Use
  Company Number: BE-ABBOTT-12P-013-0903090-00

PATIENT
  Sex: Male
  Weight: 95 kg

DRUGS (6)
  1. BUDESONIDE [Concomitant]
     Indication: CROHN'S DISEASE
  2. TELMISARTAN [Concomitant]
     Indication: PROPHYLAXIS
     Dates: start: 20110101
  3. HUMIRA [Suspect]
     Indication: CROHN'S DISEASE
     Dosage: 160 MG (BASELINE)/80 MG (WEEK 2)
     Route: 058
     Dates: start: 20080916, end: 20111221
  4. METFORMIN HCL [Concomitant]
     Indication: DIABETES MELLITUS
  5. AMLODIPINE BESYLATE [Concomitant]
     Indication: HYPERTENSION
  6. PANTOPRAZOLE [Concomitant]
     Indication: PROPHYLAXIS
     Dates: start: 20120101

REACTIONS (2)
  - VISUAL IMPAIRMENT [None]
  - DEMYELINATION [None]
